FAERS Safety Report 20351828 (Version 1)
Quarter: 2022Q1

REPORT INFORMATION
  Report Type: Spontaneous
  Country: FR (occurrence: None)
  Receive Date: 20220119
  Receipt Date: 20220119
  Transmission Date: 20220423
  Serious: Yes (Other)
  Sender: FDA-Public Use
  Company Number: 2021A756153

PATIENT
  Age: 77 Year
  Sex: Male

DRUGS (2)
  1. TAGRISSO [Suspect]
     Active Substance: OSIMERTINIB
     Indication: Non-small cell lung cancer
     Route: 048
     Dates: start: 20210318, end: 202111
  2. TAGRISSO [Suspect]
     Active Substance: OSIMERTINIB
     Indication: EGFR gene mutation
     Route: 048
     Dates: start: 20210318, end: 202111

REACTIONS (2)
  - Malignant neoplasm progression [Unknown]
  - Off label use [Unknown]

NARRATIVE: CASE EVENT DATE: 20210901
